FAERS Safety Report 6145090-3 (Version None)
Quarter: 2009Q2

REPORT INFORMATION
  Report Type: 
  Country: None (occurrence: None)
  Receive Date: 20090406
  Receipt Date: 20090316
  Transmission Date: 20091009
  Serious: No
  Sender: FDA-Public Use
  Company Number: A0763447A

PATIENT
  Age: 50 Year
  Sex: Female
  Weight: 76.8 kg

DRUGS (4)
  1. ADVAIR HFA [Suspect]
     Indication: PULMONARY FUNCTION TEST
     Dosage: 2PUFF TWICE PER DAY
     Route: 055
     Dates: start: 20080601
  2. SINGULAIR [Concomitant]
  3. ALLEGRA [Concomitant]
  4. ALLERGY SHOTS [Concomitant]

REACTIONS (1)
  - THROAT IRRITATION [None]
